FAERS Safety Report 10441043 (Version 1)
Quarter: 2014Q3

REPORT INFORMATION
  Report Type: Spontaneous
  Country: US (occurrence: None)
  Receive Date: 20140905
  Receipt Date: 20140905
  Transmission Date: 20150326
  Serious: Yes (Other)
  Sender: FDA-Public Use
  Company Number: 2014AP004300

PATIENT
  Age: 34 Year
  Sex: Female

DRUGS (1)
  1. PAXIL [Suspect]
     Active Substance: PAROXETINE HYDROCHLORIDE
     Indication: PRODUCT USED FOR UNKNOWN INDICATION
     Dosage: Q A.M.

REACTIONS (10)
  - Tinnitus [None]
  - Disturbance in attention [None]
  - Nausea [None]
  - Amnesia [None]
  - Dizziness [None]
  - Inappropriate schedule of drug administration [None]
  - Muscle twitching [None]
  - Depersonalisation [None]
  - Paraesthesia [None]
  - Apathy [None]

NARRATIVE: CASE EVENT DATE: 20140718
